FAERS Safety Report 15011119 (Version 1)
Quarter: 2018Q2

REPORT INFORMATION
  Report Type: Other
  Country: FR (occurrence: FR)
  Receive Date: 20180614
  Receipt Date: 20180614
  Transmission Date: 20180711
  Serious: Yes (Other)
  Sender: FDA-Public Use
  Company Number: FR-APOTEX-2018AP015608

PATIENT
  Age: 47 Year
  Sex: Female

DRUGS (2)
  1. CLOZAPINE. [Suspect]
     Active Substance: CLOZAPINE
     Indication: SCHIZOPHRENIA
     Dosage: 300 MG QD
     Route: 048
     Dates: start: 20180410
  2. PAROXETINE TABLET [Suspect]
     Active Substance: PAROXETINE
     Indication: DEPRESSIVE SYMPTOM
     Dosage: 30 MG, QD
     Route: 048
     Dates: start: 20180426

REACTIONS (1)
  - Tonic clonic movements [Recovering/Resolving]

NARRATIVE: CASE EVENT DATE: 20180504
